FAERS Safety Report 26164681 (Version 1)
Quarter: 2025Q4

REPORT INFORMATION
  Report Type: Spontaneous
  Country: US (occurrence: US)
  Receive Date: 20251216
  Receipt Date: 20251216
  Transmission Date: 20260118
  Serious: Yes (Other)
  Sender: SANOFI AVENTIS
  Company Number: US-SANOFI-02750833

PATIENT
  Sex: Female

DRUGS (2)
  1. DUPIXENT [Suspect]
     Active Substance: DUPILUMAB
     Indication: Dermatitis atopic
  2. NEMOLIZUMAB-ILTO [Suspect]
     Active Substance: NEMOLIZUMAB-ILTO
     Dosage: UNK
     Dates: start: 2025

REACTIONS (1)
  - Herpes ophthalmic [Unknown]

NARRATIVE: CASE EVENT DATE: 20250101
